FAERS Safety Report 18686932 (Version 2)
Quarter: 2021Q1

REPORT INFORMATION
  Report Type: Spontaneous
  Country: JP (occurrence: JP)
  Receive Date: 20201230
  Receipt Date: 20210107
  Transmission Date: 20210419
  Serious: Yes (Other)
  Sender: FDA-Public Use
  Company Number: JP-UCBSA-2020051110

PATIENT
  Age: 33 Year
  Sex: Female
  Weight: 60.1 kg

DRUGS (9)
  1. OLMETEC [Concomitant]
     Active Substance: OLMESARTAN MEDOXOMIL
     Indication: PRODUCT USED FOR UNKNOWN INDICATION
     Dosage: 20 MG, QD AFTER BREAKFAST
  2. XYZAL [Suspect]
     Active Substance: LEVOCETIRIZINE DIHYDROCHLORIDE
     Indication: RHINITIS
     Dosage: 5 MG, QD
     Route: 048
     Dates: start: 20201127, end: 20201129
  3. HORIZON [Concomitant]
     Active Substance: DIAZEPAM
     Indication: PRODUCT USED FOR UNKNOWN INDICATION
     Dosage: 5 MG, BID MORNING AND EVENING
  4. CETIRIZINE [Concomitant]
     Active Substance: CETIRIZINE HYDROCHLORIDE
     Indication: RHINITIS
     Dosage: 10 MG
     Route: 048
     Dates: end: 20201126
  5. RISPERDAL [Concomitant]
     Active Substance: RISPERIDONE
     Indication: PRODUCT USED FOR UNKNOWN INDICATION
     Dosage: 1 MG, QD BEFORE BEDTIME
  6. BISOPROLOL [Concomitant]
     Active Substance: BISOPROLOL
  7. NEOPHAGEN [CYSTEINE;GLYCINE;GLYCYRRHIZIC ACID] [Concomitant]
  8. NEOPHAGEN INJECTION [Concomitant]
     Dosage: UNK
  9. AZELNIDIPINE [Concomitant]
     Active Substance: AZELNIDIPINE

REACTIONS (3)
  - Hepatitis alcoholic [Unknown]
  - Liver disorder [Recovering/Resolving]
  - Condition aggravated [Unknown]

NARRATIVE: CASE EVENT DATE: 20201214
